FAERS Safety Report 6879238-X (Version None)
Quarter: 2010Q3

REPORT INFORMATION
  Report Type: 
  Country: None (occurrence: None)
  Receive Date: 20100728
  Receipt Date: 20091222
  Transmission Date: 20110219
  Serious: No
  Sender: FDA-Public Use
  Company Number: US-ABBOTT-09P-163-0616728-00

PATIENT
  Sex: Female

DRUGS (2)
  1. SYNTHROID [Suspect]
     Indication: HYPOTHYROIDISM
     Dates: start: 19940101
  2. MULTI-VITAMINS [Concomitant]
     Indication: VITAMIN SUPPLEMENTATION

REACTIONS (6)
  - ABDOMINAL PAIN UPPER [None]
  - BLISTER [None]
  - COELIAC DISEASE [None]
  - PRURITUS [None]
  - THYROID FUNCTION TEST ABNORMAL [None]
  - WEIGHT DECREASED [None]
